FAERS Safety Report 11860738 (Version 2)
Quarter: 2015Q4

REPORT INFORMATION
  Report Type: Report from Study
  Country: AR (occurrence: AR)
  Receive Date: 20151222
  Receipt Date: 20151229
  Transmission Date: 20160305
  Serious: No
  Sender: FDA-Public Use
  Company Number: PHHY2015AR164715

PATIENT
  Sex: Male

DRUGS (1)
  1. ULTIBRO BREEZHALER [Suspect]
     Active Substance: GLYCOPYRRONIUM\INDACATEROL
     Indication: CHRONIC OBSTRUCTIVE PULMONARY DISEASE
     Dosage: QD
     Route: 065

REACTIONS (4)
  - Spirometry abnormal [Unknown]
  - Insomnia [Recovering/Resolving]
  - Cough [Recovering/Resolving]
  - Drug resistance [Recovering/Resolving]
